FAERS Safety Report 5676955-4 (Version None)
Quarter: 2008Q1

REPORT INFORMATION
  Report Type: 
  Country: None (occurrence: None)
  Receive Date: 20080324
  Receipt Date: 20080312
  Transmission Date: 20080703
  Serious: Yes (Hospitalization, Other)
  Sender: FDA-Public Use
  Company Number: US-ROCHE-552635

PATIENT
  Age: 55 Year
  Sex: Female
  Weight: 100 kg

DRUGS (12)
  1. KLONOPIN [Suspect]
     Indication: POST-TRAUMATIC STRESS DISORDER
     Dosage: OTHER INDICATION: PANIC ATTACKS AND AGAROPHOBIA.
     Route: 065
     Dates: start: 19980101
  2. ZOLOFT [Suspect]
     Indication: POST-TRAUMATIC STRESS DISORDER
     Dosage: OTHER INDICATION: PANIC ATTACKS AND AGAROPHOBIA.
     Route: 048
     Dates: start: 19990101
  3. GABITRIL [Suspect]
     Indication: SLEEP DISORDER
     Dosage: AT BEDTIME. OTHER INDICATION: PANIC ATTACKS, ANXIETY, POST TRAUMATIC STRESS DISORDER AND AGAROPHOBI+
     Route: 048
     Dates: start: 20060816
  4. GABITRIL [Suspect]
     Route: 048
     Dates: start: 20060913, end: 20060918
  5. GABITRIL [Suspect]
     Route: 048
     Dates: start: 20060919, end: 20061204
  6. CYMBALTA [Suspect]
     Route: 048
     Dates: start: 20051208
  7. EFFEXOR XR [Suspect]
     Indication: DRUG USE FOR UNKNOWN INDICATION
     Route: 065
  8. AMBIEN [Concomitant]
     Dates: end: 20061201
  9. NEURONTIN [Concomitant]
     Dates: start: 20060801, end: 20070101
  10. RISPERDAL [Concomitant]
     Dosage: AT BEDTIME
  11. LIPITOR [Concomitant]
     Dates: start: 20040101
  12. DILTIAZAM [Concomitant]
     Dates: start: 20030101

REACTIONS (11)
  - ANXIETY [None]
  - ASTHMA [None]
  - CONVERSION DISORDER [None]
  - CONVULSION [None]
  - DEPRESSION [None]
  - MUSCLE TIGHTNESS [None]
  - PANIC ATTACK [None]
  - PNEUMONIA [None]
  - SEDATION [None]
  - THERAPEUTIC RESPONSE DECREASED [None]
  - TREMOR [None]
